FAERS Safety Report 4698757-8 (Version None)
Quarter: 2005Q2

REPORT INFORMATION
  Report Type: 
  Country: None (occurrence: None)
  Receive Date: 20050621
  Receipt Date: 20050513
  Transmission Date: 20051028
  Serious: Yes (Hospitalization, Other)
  Sender: FDA-Public Use
  Company Number: 2005074642

PATIENT
  Age: 44 Year
  Sex: Male
  Weight: 111.1313 kg

DRUGS (4)
  1. VFEND [Suspect]
     Indication: COCCIDIOIDOMYCOSIS
     Dosage: 400 MG (200 MG, BID)
     Dates: start: 20050104
  2. GLYBURIDE [Concomitant]
  3. VICODIN [Concomitant]
  4. VIAGRA [Concomitant]

REACTIONS (2)
  - CARDIAC FAILURE [None]
  - EJECTION FRACTION ABNORMAL [None]
